FAERS Safety Report 6220045-9 (Version None)
Quarter: 2009Q2

REPORT INFORMATION
  Report Type: 
  Country: None (occurrence: None)
  Receive Date: 20090609
  Receipt Date: 20090529
  Transmission Date: 20091009
  Serious: Yes (Other)
  Sender: FDA-Public Use
  Company Number: PHEH2009US05489

PATIENT
  Sex: Female

DRUGS (1)
  1. RECLAST [Suspect]
     Dosage: UNK
     Dates: start: 20070901

REACTIONS (6)
  - DENTAL IMPLANTATION [None]
  - IMPLANT EXPULSION [None]
  - INFECTION [None]
  - PAIN [None]
  - RESORPTION BONE INCREASED [None]
  - TOOTH EXTRACTION [None]
